FAERS Safety Report 18452784 (Version 3)
Quarter: 2021Q1

REPORT INFORMATION
  Report Type: Spontaneous
  Country: PH (occurrence: AU)
  Receive Date: 20201102
  Receipt Date: 20210120
  Transmission Date: 20210419
  Serious: Yes (Other)
  Sender: FDA-Public Use
  Company Number: AU-GLAXOSMITHKLINE-AU2020212782

PATIENT
  Sex: Female

DRUGS (1)
  1. VENTOLIN [Suspect]
     Active Substance: ALBUTEROL SULFATE
     Indication: ASTHMA
     Dosage: UNK, 100MCG
     Route: 055

REACTIONS (5)
  - Dyspnoea [Unknown]
  - Life support [Unknown]
  - Near death experience [Unknown]
  - Drug ineffective [Unknown]
  - Product complaint [Unknown]
